FAERS Safety Report 9844761 (Version 1)
Quarter: 2014Q1

REPORT INFORMATION
  Report Type: Spontaneous
  Country: US (occurrence: US)
  Receive Date: 20140127
  Receipt Date: 20140127
  Transmission Date: 20141002
  Serious: Yes (Other)
  Sender: FDA-Public Use
  Company Number: US-SUN PHARMACEUTICAL INDUSTRIES LTD-2014SUN00061

PATIENT
  Age: 23 Year
  Sex: Male

DRUGS (3)
  1. NALTREXONE HYDROCHLORIDE 50 MG TABLET [Suspect]
     Indication: SUBSTANCE ABUSE
     Dosage: 50 MG, QD
     Route: 065
  2. METHADONE [Suspect]
     Indication: PRODUCT USED FOR UNKNOWN INDICATION
     Dosage: 30 MG, OD FOR 5 DAYS
     Route: 065
  3. METHADONE [Suspect]
     Dosage: 90 MG, OD ON 6 TH DAY
     Route: 065

REACTIONS (1)
  - Deafness neurosensory [Not Recovered/Not Resolved]
